FAERS Safety Report 4302016-2 (Version None)
Quarter: 2004Q1

REPORT INFORMATION
  Report Type: 
  Country: None (occurrence: None)
  Receive Date: 20040220
  Receipt Date: 20040206
  Transmission Date: 20041129
  Serious: Yes (Hospitalization, Disabling)
  Sender: FDA-Public Use
  Company Number: 234193

PATIENT
  Age: 53 Year
  Sex: Female
  Weight: 59 kg

DRUGS (4)
  1. ETHINYL ESTRADIOL AND NORETHINDRONE [Suspect]
     Indication: MENOPAUSAL SYMPTOMS
     Dates: start: 20010220, end: 20020601
  2. ETHINYL ESTRADIOL AND NORETHINDRONE [Suspect]
     Indication: MENOPAUSAL SYMPTOMS
     Dates: start: 20020703, end: 20030501
  3. ETHINYL ESTRADIOL AND NORETHINDRONE [Suspect]
     Indication: MENOPAUSAL SYMPTOMS
     Dates: start: 20030522
  4. ACTIVELLE [Suspect]
     Indication: MENOPAUSAL SYMPTOMS
     Dates: start: 20000101, end: 20030601

REACTIONS (3)
  - BLINDNESS UNILATERAL [None]
  - CYST [None]
  - HAEMORRHAGE [None]
